FAERS Safety Report 6704649-2 (Version None)
Quarter: 2010Q2

REPORT INFORMATION
  Report Type: 
  Country: None (occurrence: None)
  Receive Date: 20100430
  Receipt Date: 20100421
  Transmission Date: 20101027
  Serious: Yes (Hospitalization, Other)
  Sender: FDA-Public Use
  Company Number: DE-JNJFOC-20100406477

PATIENT
  Age: 42 Year
  Sex: Female

DRUGS (2)
  1. TOPAMAX [Suspect]
     Indication: EPILEPSY
     Route: 048
  2. LAMOTRIGINE [Concomitant]
     Indication: EPILEPSY
     Route: 065

REACTIONS (4)
  - DYSPHAGIA [None]
  - LYMPHADENOPATHY [None]
  - LYMPHOID TISSUE HYPERPLASIA [None]
  - RESPIRATORY DISTRESS [None]
